FAERS Safety Report 15223070 (Version 1)
Quarter: 2018Q3

REPORT INFORMATION
  Report Type: Spontaneous
  Country: US (occurrence: US)
  Receive Date: 20180705
  Receipt Date: 20180705
  Transmission Date: 20181010
  Serious: No
  Sender: FDA-Public Use
  Company Number: None

PATIENT

DRUGS (2)
  1. CLONAZEPAM TABLETS [Suspect]
     Active Substance: CLONAZEPAM
  2. GLIMEPIRIDE TABLETS [Suspect]
     Active Substance: GLIMEPIRIDE

REACTIONS (2)
  - Product label confusion [None]
  - Product packaging confusion [None]
